FAERS Safety Report 8711986 (Version 2)
Quarter: 2012Q4

REPORT INFORMATION
  Report Type: 
  Country: DE (occurrence: DE)
  Receive Date: 20120807
  Receipt Date: 20120831
  Transmission Date: 20130627
  Serious: Yes (Other)
  Sender: FDA-Public Use
  Company Number: DE-B.I. PHARMACEUTICALS,INC./RIDGEFIELD-2012-DE-01784DE

PATIENT
  Sex: Male

DRUGS (3)
  1. PRADAXA [Suspect]
     Indication: CEREBROVASCULAR ACCIDENT PROPHYLAXIS
     Dosage: 300 mg
  2. PRADAXA [Suspect]
     Indication: ATRIAL FIBRILLATION
  3. BELOK ZOK MITE [Concomitant]
     Dosage: 1 anz

REACTIONS (1)
  - Transient ischaemic attack [Recovered/Resolved]
